FAERS Safety Report 15145577 (Version 1)
Quarter: 2018Q3

REPORT INFORMATION
  Report Type: Spontaneous
  Country: US (occurrence: US)
  Receive Date: 20180713
  Receipt Date: 20180713
  Transmission Date: 20181010
  Serious: No
  Sender: FDA-Public Use
  Company Number: US-SHIRE-US201825002

PATIENT
  Age: 76 Year

DRUGS (1)
  1. PENTASA [Suspect]
     Active Substance: MESALAMINE
     Indication: CROHN^S DISEASE
     Dosage: 8 CAPSULES, 1X/DAY:QD
     Route: 065

REACTIONS (3)
  - Prescribed overdose [Unknown]
  - Insurance issue [Unknown]
  - Abdominal pain upper [Unknown]
